APPROVED DRUG PRODUCT: CEFOXITIN
Active Ingredient: CEFOXITIN SODIUM
Strength: EQ 10GM BASE/VIAL
Dosage Form/Route: INJECTABLE;INJECTION
Application: A065415 | Product #001 | TE Code: AP
Applicant: ACS DOBFAR SPA
Approved: May 19, 2010 | RLD: No | RS: Yes | Type: RX